FAERS Safety Report 4784314-1 (Version None)
Quarter: 2005Q3

REPORT INFORMATION
  Report Type: 
  Country: None (occurrence: None)
  Receive Date: 20050928
  Receipt Date: 20050914
  Transmission Date: 20060218
  Serious: No
  Sender: FDA-Public Use
  Company Number: 217178

PATIENT
  Age: 50 Year
  Sex: Female
  Weight: 68.9 kg

DRUGS (4)
  1. AVASTIN [Suspect]
     Indication: COLORECTAL CANCER METASTATIC
     Dosage: 340 MG, Q2W, INTRAVENOUS
     Route: 042
     Dates: start: 20050726
  2. ELOXATIN [Concomitant]
  3. LEUCOVORIN CALCIUM [Concomitant]
  4. FLUOROURACIL [Concomitant]

REACTIONS (3)
  - FAECES DISCOLOURED [None]
  - HAEMOGLOBIN DECREASED [None]
  - VARICES OESOPHAGEAL [None]
